FAERS Safety Report 10180933 (Version 1)
Quarter: 2014Q2

REPORT INFORMATION
  Report Type: Spontaneous
  Country: US (occurrence: US)
  Receive Date: 20140519
  Receipt Date: 20140519
  Transmission Date: 20141212
  Serious: No
  Sender: FDA-Public Use
  Company Number: US-AMGEN INC.-USASP2014003794

PATIENT
  Age: 62 Year
  Sex: Female

DRUGS (14)
  1. PROLIA [Suspect]
     Indication: OSTEOPOROSIS POSTMENOPAUSAL
     Dosage: UNK
     Route: 065
     Dates: start: 20120905
  2. ALBUTEROL                          /00139501/ [Concomitant]
     Dosage: UNK
     Route: 045
  3. FLOVENT HFA [Concomitant]
     Dosage: UNK
     Route: 045
  4. GELNIQUE [Concomitant]
     Dosage: UNK
     Route: 065
  5. VAGIFEM [Concomitant]
     Dosage: UNK
     Route: 065
  6. TESTOSTERONE [Concomitant]
     Dosage: UNK, COMPOUNDED
  7. ALIGN [Concomitant]
     Dosage: UNK
     Route: 065
  8. MULTIVITAMIN                       /00097801/ [Concomitant]
     Dosage: UNK
     Route: 065
  9. CALTRATE                           /00944201/ [Concomitant]
     Dosage: UNK
     Route: 065
  10. MAGNESIUM [Concomitant]
     Dosage: UNK
     Route: 065
  11. B COMPLEX                          /00212701/ [Concomitant]
     Dosage: UNK
     Route: 065
  12. VITAMIN D                          /00107901/ [Concomitant]
     Dosage: 1000 IU, QD
     Route: 065
  13. COSAMIN DS                         /07182401/ [Concomitant]
     Dosage: UNK
     Route: 065
  14. ESTROGEL [Concomitant]
     Dosage: UNK
     Route: 065

REACTIONS (3)
  - Device failure [Unknown]
  - Toothache [Unknown]
  - Tooth fracture [Unknown]
